FAERS Safety Report 24162410 (Version 1)
Quarter: 2024Q3

REPORT INFORMATION
  Report Type: Spontaneous
  Country: US (occurrence: None)
  Receive Date: 20240731
  Receipt Date: 20240731
  Transmission Date: 20241017
  Serious: Yes (Hospitalization)
  Sender: Public
  Company Number: None

PATIENT
  Sex: Male

DRUGS (8)
  1. ELFABRIO [Suspect]
     Active Substance: PEGUNIGALSIDASE ALFA-IWXJ
     Indication: Fabry^s disease
     Dosage: 80MG EVERY 2 WEEKS IV?
     Route: 042
     Dates: start: 202407
  2. DIPHENHYDRAMINE [Concomitant]
     Active Substance: DIPHENHYDRAMINE
  3. SODIUM CHLORUOOML/BAG) [Concomitant]
  4. SODIUM CHLOR (500ML/BAG) [Concomitant]
  5. SODIUM CHLOR (50ML/BAG) [Concomitant]
  6. BACTERIOSTATIC WATER MDV [Concomitant]
  7. METHYLPRED SOD SUCC SDV [Concomitant]
  8. NORMAL SALINE FLUSH (10ML) [Concomitant]

REACTIONS (1)
  - Renal transplant [None]
